FAERS Safety Report 17188022 (Version 2)
Quarter: 2020Q1

REPORT INFORMATION
  Report Type: Report from Study
  Country: JP (occurrence: JP)
  Receive Date: 20191221
  Receipt Date: 20200303
  Transmission Date: 20200409
  Serious: Yes (Other)
  Sender: FDA-Public Use
  Company Number: JP-009507513-1912JPN000770J

PATIENT
  Age: 17 Year
  Sex: Male
  Weight: 43 kg

DRUGS (6)
  1. SOLU-CORTEF [Concomitant]
     Active Substance: HYDROCORTISONE SODIUM SUCCINATE
     Dosage: 250 MILLIGRAM, QD
     Route: 042
     Dates: start: 20191126, end: 20191126
  2. TACROLIMUS HYDRATE [Concomitant]
     Active Substance: TACROLIMUS
     Indication: IMMUNOSUPPRESSION
     Dosage: UNK
     Route: 065
     Dates: start: 20191124
  3. LETERMOVIR [Suspect]
     Active Substance: LETERMOVIR
     Indication: ANTIVIRAL PROPHYLAXIS
     Dosage: 480 MILLIGRAM, QD
     Route: 048
     Dates: start: 20191126, end: 20191215
  4. TENORMIN [Suspect]
     Active Substance: ATENOLOL
     Dosage: UNK
     Route: 065
     Dates: start: 20191214, end: 20200104
  5. PROGRAF [Concomitant]
     Active Substance: TACROLIMUS
     Dosage: 0.9 MILLIGRAM, QD
     Route: 042
     Dates: start: 20191125, end: 20200106
  6. TENORMIN [Suspect]
     Active Substance: ATENOLOL
     Dosage: UNK
     Route: 065
     Dates: start: 20200208

REACTIONS (4)
  - Oral disorder [Unknown]
  - Cytomegalovirus infection [Unknown]
  - Adverse event [Unknown]
  - Bone marrow failure [Not Recovered/Not Resolved]

NARRATIVE: CASE EVENT DATE: 20191205
